FAERS Safety Report 17763909 (Version 5)
Quarter: 2020Q2

REPORT INFORMATION
  Report Type: Spontaneous
  Country: IT (occurrence: IT)
  Receive Date: 20200510
  Receipt Date: 20200616
  Transmission Date: 20200714
  Serious: Yes (Life-Threatening, Hospitalization, Congenital Anomaly, Other)
  Sender: FDA-Public Use
  Company Number: NVSC2020IT122914

PATIENT
  Sex: Female
  Weight: 2.21 kg

DRUGS (5)
  1. PARACETAMOL [Suspect]
     Active Substance: ACETAMINOPHEN
     Indication: FOETAL EXPOSURE DURING PREGNANCY
     Dosage: 2 G, QD
     Route: 064
  2. SERTRALINE [Interacting]
     Active Substance: SERTRALINE HYDROCHLORIDE
     Indication: FOETAL EXPOSURE DURING PREGNANCY
     Dosage: 25 MG, QD
     Route: 064
  3. DIAZEPAM. [Suspect]
     Active Substance: DIAZEPAM
     Indication: FOETAL EXPOSURE DURING PREGNANCY
     Dosage: MATERNAL DOSE: 1-2 MG/DAY
     Route: 064
  4. PARACETAMOL [Interacting]
     Active Substance: ACETAMINOPHEN
     Dosage: MATERNAL DOSE:1-2 G OCCASIONALLY IN THE SECOND AND THIRD TRIMESTER
     Route: 064
  5. LORAZEPAM. [Suspect]
     Active Substance: LORAZEPAM
     Indication: FOETAL EXPOSURE DURING PREGNANCY
     Dosage: MATERNAL DOSE: 10 DROPS/DAY (1/12 MILLILITRE)
     Route: 064

REACTIONS (15)
  - Hypoxia [Recovered/Resolved]
  - Tricuspid valve incompetence [Recovered/Resolved]
  - Pulmonary hypertension [Recovered/Resolved]
  - Ductus arteriosus premature closure [Recovered/Resolved]
  - Cardiomegaly [Recovered/Resolved]
  - Pulmonary valve incompetence [Unknown]
  - Drug interaction [Recovered/Resolved]
  - Newborn persistent pulmonary hypertension [Unknown]
  - Low birth weight baby [Unknown]
  - Foetal exposure during pregnancy [Recovered/Resolved]
  - Neonatal hypoxia [Unknown]
  - Right ventricular dilatation [Recovered/Resolved]
  - Cardiac dysfunction [Recovered/Resolved]
  - Right ventricular hypertrophy [Recovered/Resolved]
  - Premature baby [Unknown]
